FAERS Safety Report 6718550-1 (Version None)
Quarter: 2010Q2

REPORT INFORMATION
  Report Type: 
  Country: None (occurrence: None)
  Receive Date: 20100510
  Receipt Date: 20100504
  Transmission Date: 20101027
  Serious: Yes (Other)
  Sender: FDA-Public Use
  Company Number: US-GILEAD-2010-0028929

PATIENT
  Sex: Female
  Weight: 61.29 kg

DRUGS (19)
  1. LETAIRIS [Suspect]
     Indication: PULMONARY ARTERIAL HYPERTENSION
     Route: 048
     Dates: start: 20081119
  2. FLOLAN [Concomitant]
  3. REVATIO [Concomitant]
  4. COUMADIN [Concomitant]
  5. LASIX [Concomitant]
  6. ZAROXOLYN [Concomitant]
  7. MYCOBUTIN [Concomitant]
  8. METHOTREXATE [Concomitant]
  9. PREDNISONE TAB [Concomitant]
  10. CIPRO [Concomitant]
  11. COMPAZINE [Concomitant]
  12. SK-TETRACYCLINE [Concomitant]
  13. MIRALAX [Concomitant]
  14. PRILOSEC [Concomitant]
  15. REGLAN [Concomitant]
  16. XANAX [Concomitant]
  17. DILAUDID [Concomitant]
  18. CALCIUM [Concomitant]
  19. STOOL SOFTENER [Concomitant]

REACTIONS (1)
  - SYNCOPE [None]
